FAERS Safety Report 8555179-7 (Version None)
Quarter: 2012Q3

REPORT INFORMATION
  Report Type: 
  Country: None (occurrence: None)
  Receive Date: 20120731
  Receipt Date: 20120723
  Transmission Date: 20120928
  Serious: Yes (Death)
  Sender: FDA-Public Use
  Company Number: US-FRI-1000036809

PATIENT
  Sex: Male
  Weight: 86.1 kg

DRUGS (14)
  1. SAVELLA [Suspect]
     Indication: FIBROMYALGIA
     Dosage: 12.5 MG
     Route: 048
     Dates: start: 20120327, end: 20120327
  2. ZANAFLEX [Concomitant]
  3. VITAMIN D [Concomitant]
  4. SAVELLA [Suspect]
     Dosage: 25 MG
     Route: 048
     Dates: start: 20120328, end: 20120329
  5. CITRACAL [Concomitant]
  6. RECLAST [Concomitant]
  7. SAVELLA [Suspect]
     Dosage: 50 MG
     Route: 048
     Dates: start: 20120330, end: 20120402
  8. OXYCODONE HCL [Concomitant]
  9. XANAX [Concomitant]
  10. PROTONIX [Concomitant]
  11. GLUCOSAMINE [Concomitant]
  12. CLARITIN [Concomitant]
  13. LYRICA [Concomitant]
  14. SAVELLA [Suspect]
     Dosage: 100 MG
     Route: 048
     Dates: start: 20120403, end: 20120101

REACTIONS (1)
  - COMPLETED SUICIDE [None]
